FAERS Safety Report 4680282-1 (Version None)
Quarter: 2005Q2

REPORT INFORMATION
  Report Type: 
  Country: None (occurrence: None)
  Receive Date: 20050601
  Receipt Date: 20050526
  Transmission Date: 20051028
  Serious: Yes (Hospitalization)
  Sender: FDA-Public Use
  Company Number: A044-002-005612

PATIENT
  Age: 91 Year
  Sex: Male

DRUGS (1)
  1. ARICEPT [Suspect]
     Dosage: ORAL
     Route: 048
     Dates: start: 20040101, end: 20050101

REACTIONS (1)
  - STATUS EPILEPTICUS [None]
